FAERS Safety Report 4437791-X (Version None)
Quarter: 2004Q3

REPORT INFORMATION
  Report Type: 
  Country: None (occurrence: None)
  Receive Date: 20040827
  Receipt Date: 20040813
  Transmission Date: 20050211
  Serious: No
  Sender: FDA-Public Use
  Company Number: 04P-008-0268572-00

PATIENT
  Age: 30 Year
  Sex: Male

DRUGS (3)
  1. EPILIM TABLET SODIUM VALPROATE) (SODIUM VALPROATE) (SODIUM VALPROATE) [Suspect]
     Dosage: 500 MG, 1 IN 1 D, ORAL : 500 MG, 2 IN 1 D, ORAL : 500 MG , 3 IN 1 D, ORAL
     Route: 048
     Dates: start: 20040701, end: 20040701
  2. EPILIM TABLET SODIUM VALPROATE) (SODIUM VALPROATE) (SODIUM VALPROATE) [Suspect]
     Dosage: 500 MG, 1 IN 1 D, ORAL : 500 MG, 2 IN 1 D, ORAL : 500 MG , 3 IN 1 D, ORAL
     Route: 048
     Dates: end: 20040701
  3. EPILIM TABLET SODIUM VALPROATE) (SODIUM VALPROATE) (SODIUM VALPROATE) [Suspect]
     Dosage: 500 MG, 1 IN 1 D, ORAL : 500 MG, 2 IN 1 D, ORAL : 500 MG , 3 IN 1 D, ORAL
     Route: 048
     Dates: start: 20040701

REACTIONS (2)
  - ANTICONVULSANT DRUG LEVEL DECREASED [None]
  - CONVULSION [None]
